FAERS Safety Report 11843337 (Version 2)
Quarter: 2016Q1

REPORT INFORMATION
  Report Type: Report from Study
  Country: DE (occurrence: DE)
  Receive Date: 20151217
  Receipt Date: 20160317
  Transmission Date: 20160526
  Serious: Yes (Hospitalization)
  Sender: FDA-Public Use
  Company Number: DE-ABBVIE-15K-062-1517703-00

PATIENT
  Age: 58 Year
  Sex: Female

DRUGS (2)
  1. HUMIRA [Suspect]
     Active Substance: ADALIMUMAB
     Indication: CROHN^S DISEASE
     Route: 058
     Dates: start: 20130822
  2. HUMIRA [Suspect]
     Active Substance: ADALIMUMAB
     Route: 058
     Dates: end: 20151008

REACTIONS (4)
  - Soft tissue inflammation [Recovered/Resolved]
  - Arthritis [Recovered/Resolved]
  - Pain [Recovering/Resolving]
  - Soft tissue inflammation [Recovered/Resolved]

NARRATIVE: CASE EVENT DATE: 201509
